FAERS Safety Report 6401971-4 (Version None)
Quarter: 2009Q4

REPORT INFORMATION
  Report Type: 
  Country: None (occurrence: None)
  Receive Date: 20091015
  Receipt Date: 20091009
  Transmission Date: 20100525
  Serious: Yes (Other)
  Sender: FDA-Public Use
  Company Number: B0594014A

PATIENT
  Sex: Female

DRUGS (4)
  1. PAXIL [Suspect]
     Indication: DEPRESSION
     Dosage: 10MG PER DAY
     Route: 048
     Dates: start: 20090618, end: 20090830
  2. GRAMALIL [Concomitant]
     Indication: DEMENTIA ALZHEIMER'S TYPE
     Dosage: 200MG PER DAY
     Route: 048
     Dates: start: 20070313
  3. RIVOTRIL [Concomitant]
     Indication: SOMNAMBULISM
     Dosage: 4.5MG PER DAY
     Route: 048
     Dates: start: 20070404
  4. ARICEPT [Concomitant]
     Indication: DEMENTIA ALZHEIMER'S TYPE
     Dosage: 5MG PER DAY
     Route: 048
     Dates: start: 20070207, end: 20090819

REACTIONS (1)
  - LOSS OF CONSCIOUSNESS [None]
